FAERS Safety Report 13018009 (Version 2)
Quarter: 2017Q2

REPORT INFORMATION
  Report Type: Spontaneous
  Country: US (occurrence: US)
  Receive Date: 20161212
  Receipt Date: 20170502
  Transmission Date: 20170830
  Serious: Yes (Other)
  Sender: FDA-Public Use
  Company Number: US-BAYER-2016-233201

PATIENT
  Age: 31 Year
  Sex: Female

DRUGS (1)
  1. MIRENA [Suspect]
     Active Substance: LEVONORGESTREL
     Dosage: 20 MCG/24HR, CONT
     Route: 015
     Dates: start: 20080610, end: 20130913

REACTIONS (10)
  - Amnesia [None]
  - Device use issue [None]
  - Nausea [None]
  - Vitreous floaters [None]
  - Idiopathic intracranial hypertension [None]
  - Headache [None]
  - Weight increased [None]
  - Tinnitus [None]
  - Vision blurred [None]
  - Neck pain [None]

NARRATIVE: CASE EVENT DATE: 20131217
